FAERS Safety Report 18844302 (Version 1)
Quarter: 2021Q1

REPORT INFORMATION
  Report Type: Report from Study
  Country: US (occurrence: US)
  Receive Date: 20210203
  Receipt Date: 20210203
  Transmission Date: 20210419
  Serious: No
  Sender: FDA-Public Use
  Company Number: US-EXELIXIS-CABO-20029512

PATIENT
  Age: 89 Year
  Sex: Male

DRUGS (3)
  1. CABOMETYX [Suspect]
     Active Substance: CABOZANTINIB S-MALATE
     Dosage: 20 MG, QD(AM WITHOUT FOOD)
     Dates: start: 20200604
  2. CABOMETYX [Suspect]
     Active Substance: CABOZANTINIB S-MALATE
     Dosage: 30 MG QD, 1/2 HALF OF 60 MG TABLET, CUTTING IN HALF (REPORTED)
     Dates: start: 20200513
  3. CABOMETYX [Suspect]
     Active Substance: CABOZANTINIB S-MALATE
     Indication: MALIGNANT RESPIRATORY TRACT NEOPLASM
     Dosage: 60 MG, QD
     Dates: start: 20200413, end: 20200427

REACTIONS (9)
  - Blood pressure systolic increased [Not Recovered/Not Resolved]
  - Fatigue [Recovering/Resolving]
  - Dizziness [Not Recovered/Not Resolved]
  - Off label use [Unknown]
  - Asthenia [Recovering/Resolving]
  - Wrong technique in product usage process [Unknown]
  - Rash [Recovering/Resolving]
  - Blood pressure decreased [Not Recovered/Not Resolved]
  - Gait disturbance [Unknown]

NARRATIVE: CASE EVENT DATE: 202004
